FAERS Safety Report 6112626-8 (Version None)
Quarter: 2009Q1

REPORT INFORMATION
  Report Type: 
  Country: None (occurrence: None)
  Receive Date: 20090312
  Receipt Date: 20090225
  Transmission Date: 20090719
  Serious: Yes (Death)
  Sender: FDA-Public Use
  Company Number: US-TYCO HEALTHCARE/MALLINCKRODT-T200900618

PATIENT
  Age: 28 Year
  Sex: Male

DRUGS (1)
  1. METHADOSE [Suspect]
     Indication: DRUG DEPENDENCE

REACTIONS (2)
  - COMPLETED SUICIDE [None]
  - DRUG DEPENDENCE [None]
